FAERS Safety Report 5473612-4 (Version None)
Quarter: 2007Q4

REPORT INFORMATION
  Report Type: 
  Country: None (occurrence: None)
  Receive Date: 20071001
  Receipt Date: 20060706
  Transmission Date: 20080405
  Serious: Yes (Other)
  Sender: FDA-Public Use
  Company Number: US-PFIZER INC-2005059260

PATIENT
  Sex: Male
  Weight: 93 kg

DRUGS (7)
  1. DOSTINEX [Suspect]
     Indication: PROLACTINOMA
     Route: 048
  2. COZAAR [Concomitant]
     Dosage: TEXT:UNKNOWN
     Route: 065
  3. FIORICET [Concomitant]
     Dosage: TEXT:UNKNOWN
     Route: 065
  4. VITAMIN CAP [Concomitant]
     Dosage: TEXT:UNKNOWN
     Route: 065
  5. ASCORBIC ACID [Concomitant]
     Dosage: TEXT:UNKNOWN
     Route: 065
  6. SAW PALMETTO [Concomitant]
     Dosage: TEXT:UNKNOWN
     Route: 065
  7. PEPCID AC [Concomitant]
     Dosage: TEXT:UNKNOWN
     Route: 065

REACTIONS (4)
  - AMYLOIDOSIS [None]
  - BLOOD ALBUMIN ABNORMAL [None]
  - BODY HEIGHT DECREASED [None]
  - PROTEINURIA [None]
